FAERS Safety Report 7708555-6 (Version None)
Quarter: 2011Q3

REPORT INFORMATION
  Report Type: 
  Country: None (occurrence: None)
  Receive Date: 20110825
  Receipt Date: 20101208
  Transmission Date: 20111222
  Serious: Yes (Death)
  Sender: FDA-Public Use
  Company Number: US-BAYER-2011-005090

PATIENT

DRUGS (7)
  1. VINCRISTINE [Concomitant]
     Indication: DIFFUSE LARGE B-CELL LYMPHOMA
     Dosage: 2 MG, UNK
     Route: 042
  2. CYCLOPHOSPHAMIDE [Concomitant]
     Indication: DIFFUSE LARGE B-CELL LYMPHOMA
     Dosage: 750 MG/M2, ON DAYS 1-5 OF EACH 21-DAY CYCLE
     Route: 042
  3. PREDNISONE [Concomitant]
     Indication: DIFFUSE LARGE B-CELL LYMPHOMA
     Dosage: 100 MG/M2, ON DAYS 1-5 OF EACH 21-DAY CYCLE
     Route: 048
  4. RITUXIMAB [Concomitant]
     Indication: DIFFUSE LARGE B-CELL LYMPHOMA
     Dosage: 375 MG/M2, ON DAYS 1-5 OF EACH 21-DAY CYCLE
     Route: 042
  5. SARGRAMOSTIM [Suspect]
     Indication: DIFFUSE LARGE B-CELL LYMPHOMA
     Dosage: 250 MCG/M2, EVERY 21 DAYS FROM 6 TO 8 CYCLES
     Route: 058
  6. DOXORUBICIN HCL [Concomitant]
     Indication: DIFFUSE LARGE B-CELL LYMPHOMA
     Dosage: 50 MG/M2, ON DAYS 1-5 OF EACH 21-DAY CYCLE
     Route: 042
  7. ANTIEMETICS AND ANTINAUSEANTS [Concomitant]
     Indication: PREMEDICATION

REACTIONS (1)
  - CEREBROVASCULAR ACCIDENT [None]
